FAERS Safety Report 21525062 (Version 1)
Quarter: 2022Q4

REPORT INFORMATION
  Report Type: Spontaneous
  Country: IT (occurrence: IT)
  Receive Date: 20221030
  Receipt Date: 20221030
  Transmission Date: 20230112
  Serious: Yes (Other)
  Sender: FDA-Public Use
  Company Number: None

PATIENT
  Age: 29 Year
  Sex: Female
  Weight: 70 kg

DRUGS (1)
  1. CYCLOSPORINE [Suspect]
     Active Substance: CYCLOSPORINE
     Indication: Psoriasis
     Dosage: 1 TABLET 100 MG AND 1 TABLET 50 MG IN THE MORNING; 1 TABLET 100 MG AND 1 TABLET 25 MG IN THE EVENING
     Dates: start: 202111, end: 20220222

REACTIONS (3)
  - Asthenia [Recovered/Resolved]
  - Eczema [Unknown]
  - Nausea [Recovered/Resolved]

NARRATIVE: CASE EVENT DATE: 20211201
